FAERS Safety Report 5252861-4 (Version None)
Quarter: 2007Q1

REPORT INFORMATION
  Report Type: 
  Country: None (occurrence: None)
  Receive Date: 20070227
  Receipt Date: 20070212
  Transmission Date: 20070707
  Serious: Yes (Hospitalization)
  Sender: FDA-Public Use
  Company Number: MEDI-0005433

PATIENT
  Age: 14 Month
  Sex: 0

DRUGS (3)
  1. SYNAGIS [Suspect]
     Indication: ANTIVIRAL PROPHYLAXIS
     Dosage: 65 MG, INTRAMUSCULAR, 45 MG, INTRAMUSCULAR, 48 MG, INTRAMUSCULAR
     Route: 030
     Dates: start: 20051228, end: 20060308
  2. SYNAGIS [Suspect]
     Indication: ANTIVIRAL PROPHYLAXIS
     Dosage: 65 MG, INTRAMUSCULAR, 45 MG, INTRAMUSCULAR, 48 MG, INTRAMUSCULAR
     Route: 030
     Dates: start: 20051228
  3. SYNAGIS [Suspect]
     Indication: ANTIVIRAL PROPHYLAXIS
     Dosage: 65 MG, INTRAMUSCULAR, 45 MG, INTRAMUSCULAR, 48 MG, INTRAMUSCULAR
     Route: 030
     Dates: start: 20060131

REACTIONS (2)
  - HYPERTHERMIA [None]
  - PYELONEPHRITIS [None]
